FAERS Safety Report 4925945-5 (Version None)
Quarter: 2006Q1

REPORT INFORMATION
  Report Type: 
  Country: None (occurrence: None)
  Receive Date: 20060228
  Receipt Date: 20050419
  Transmission Date: 20060701
  Serious: No
  Sender: FDA-Public Use
  Company Number: US-GLAXOSMITHKLINE-A0554836A

PATIENT
  Age: 93 Year
  Sex: Female

DRUGS (3)
  1. LAMICTAL [Suspect]
     Dosage: 50MG TWICE PER DAY
     Route: 048
     Dates: start: 20050404
  2. DILANTIN [Concomitant]
  3. SYNTHROID [Concomitant]

REACTIONS (12)
  - DYSPHAGIA [None]
  - EYE SWELLING [None]
  - HEADACHE [None]
  - LOCAL SWELLING [None]
  - LYMPHADENOPATHY [None]
  - NIGHTMARE [None]
  - PARAESTHESIA ORAL [None]
  - RASH [None]
  - SLEEP TALKING [None]
  - SOMNOLENCE [None]
  - SPEECH DISORDER [None]
  - SWELLING FACE [None]
